FAERS Safety Report 23718138 (Version 1)
Quarter: 2024Q2

REPORT INFORMATION
  Report Type: Spontaneous
  Country: US (occurrence: US)
  Receive Date: 20240408
  Receipt Date: 20240408
  Transmission Date: 20240716
  Serious: Yes (Death)
  Sender: FDA-Public Use
  Company Number: US-HIKMA PHARMACEUTICALS USA INC.-US-H14001-24-02622

PATIENT
  Age: 42 Year
  Sex: Female

DRUGS (14)
  1. DEXAMETHASONE [Suspect]
     Active Substance: DEXAMETHASONE
     Indication: Differentiation syndrome
     Dosage: 10 MILLIGRAM, BID
     Route: 065
  2. DEXAMETHASONE [Suspect]
     Active Substance: DEXAMETHASONE
     Dosage: 10 MILLIGRAM, Q12H
     Route: 065
  3. METHYLPREDNISOLONE [Suspect]
     Active Substance: METHYLPREDNISOLONE
     Dosage: 125 MILLIGRAM
     Route: 065
  4. METHYLPREDNISOLONE [Suspect]
     Active Substance: METHYLPREDNISOLONE
     Indication: Differentiation syndrome
     Dosage: 250 MILLIGRAM
     Route: 042
  5. TRETINOIN [Concomitant]
     Active Substance: TRETINOIN
     Indication: Acute promyelocytic leukaemia
     Dosage: 56 MILLIGRAM, BID
     Route: 048
  6. AMIKACIN [Concomitant]
     Active Substance: AMIKACIN
     Indication: Anti-infective therapy
     Dosage: UNK
     Route: 065
  7. ARSENIC TRIOXIDE [Concomitant]
     Active Substance: ARSENIC TRIOXIDE
     Indication: Acute promyelocytic leukaemia
     Dosage: 20 MILLIGRAM, QD
     Route: 042
  8. FUROSEMIDE [Concomitant]
     Active Substance: FUROSEMIDE
     Indication: Product used for unknown indication
     Dosage: 40 MILLIGRAM
     Route: 065
  9. MEDROXYPROGESTERONE [Concomitant]
     Active Substance: MEDROXYPROGESTERONE
     Indication: Vaginal haemorrhage
     Dosage: UNK
     Route: 065
  10. MEROPENEM [Concomitant]
     Active Substance: MEROPENEM
     Indication: Anti-infective therapy
     Dosage: UNK
     Route: 065
  11. MICAFUNGIN [Concomitant]
     Active Substance: MICAFUNGIN SODIUM
     Indication: Anti-infective therapy
     Dosage: UNK
     Route: 065
  12. SODIUM CHLORIDE [Concomitant]
     Active Substance: SODIUM CHLORIDE
     Indication: Product used for unknown indication
     Dosage: 100 CC/HR
     Route: 065
  13. PIPERACILLIN AND TAZOBACTAM [Concomitant]
     Active Substance: PIPERACILLIN SODIUM\TAZOBACTAM SODIUM
     Indication: Tonsillitis
     Dosage: UNKNOWN
     Route: 065
  14. VANCOMYCIN [Concomitant]
     Active Substance: VANCOMYCIN
     Indication: Antibiotic therapy
     Dosage: UNK
     Route: 065

REACTIONS (1)
  - Drug ineffective [Fatal]
